FAERS Safety Report 5253924-X (Version None)
Quarter: 2007Q1

REPORT INFORMATION
  Report Type: 
  Country: None (occurrence: None)
  Receive Date: 20070228
  Receipt Date: 20070228
  Transmission Date: 20070707
  Serious: Yes (Other)
  Sender: FDA-Public Use
  Company Number: None

PATIENT
  Age: 10 Year
  Sex: Male

DRUGS (1)
  1. PPD/TUBERCULIN [Suspect]
     Dosage: INTRADERMAL/LEFT VENTRAL IA
     Route: 023

REACTIONS (1)
  - ERYTHEMA [None]
